FAERS Safety Report 8277902-1 (Version None)
Quarter: 2012Q2

REPORT INFORMATION
  Report Type: 
  Country: None (occurrence: None)
  Receive Date: 20120412
  Receipt Date: 20120402
  Transmission Date: 20120825
  Serious: Yes (Other)
  Sender: FDA-Public Use
  Company Number: US-ELI_LILLY_AND_COMPANY-US201111007128

PATIENT
  Age: 68 Year
  Sex: Female
  Weight: 51.247 kg

DRUGS (2)
  1. FORTEO [Suspect]
     Indication: SENILE OSTEOPOROSIS
     Dosage: 20 UG, QD
     Route: 065
     Dates: start: 20090728, end: 20110311
  2. RECLAST [Concomitant]
     Dosage: UNK
     Dates: start: 20110301

REACTIONS (5)
  - HIP FRACTURE [None]
  - RASH [None]
  - ACCIDENT [None]
  - STRESS FRACTURE [None]
  - FALL [None]
